FAERS Safety Report 24156991 (Version 1)
Quarter: 2024Q3

REPORT INFORMATION
  Report Type: Spontaneous
  Country: ZA (occurrence: None)
  Receive Date: 20240731
  Receipt Date: 20240731
  Transmission Date: 20241016
  Serious: Yes (Hospitalization)
  Sender: ASTRAZENECA
  Company Number: 2024A171201

PATIENT
  Age: 26663 Day
  Sex: Female

DRUGS (10)
  1. DAPAGLIFLOZIN PROPANEDIOL [Suspect]
     Active Substance: DAPAGLIFLOZIN PROPANEDIOL
     Indication: Type 2 diabetes mellitus
     Route: 048
  2. ACETAMINOPHEN\CAFFEINE\CODEINE\DOXYLAMINE [Concomitant]
     Active Substance: ACETAMINOPHEN\CAFFEINE\CODEINE\DOXYLAMINE
     Route: 048
  3. TRAZODONE HYDROCHLORIDE [Concomitant]
     Active Substance: TRAZODONE HYDROCHLORIDE
     Indication: Depression
     Route: 048
  4. PRADAXA [Concomitant]
     Active Substance: DABIGATRAN ETEXILATE MESYLATE
     Indication: Deep vein thrombosis
     Route: 048
  5. BROMAZEPAM [Concomitant]
     Active Substance: BROMAZEPAM
     Indication: Anxiety
     Route: 048
  6. CARVEDILOL [Concomitant]
     Active Substance: CARVEDILOL
     Indication: Hypertension
     Route: 048
  7. AMLODIPINE BESYLATE\INDAPAMIDE\PERINDOPRIL ARGININE [Concomitant]
     Active Substance: AMLODIPINE BESYLATE\INDAPAMIDE\PERINDOPRIL ARGININE
     Indication: Hypertension
     Dosage: 10/2.5/10 MG
     Route: 048
  8. MEDAZINE NAUSEA [Concomitant]
     Route: 048
  9. ACETAMINOPHEN\CAFFEINE\CODEINE\DOXYLAMINE [Concomitant]
     Active Substance: ACETAMINOPHEN\CAFFEINE\CODEINE\DOXYLAMINE
     Route: 048
  10. BROMAZEPAM 6 KIARA [Concomitant]
     Indication: Anxiety
     Route: 048

REACTIONS (1)
  - Blood pressure increased [Unknown]
